FAERS Safety Report 6199055-6 (Version None)
Quarter: 2009Q2

REPORT INFORMATION
  Report Type: 
  Country: None (occurrence: None)
  Receive Date: 20090522
  Receipt Date: 20090512
  Transmission Date: 20091009
  Serious: Yes (Congenital Anomaly)
  Sender: FDA-Public Use
  Company Number: DE-BAYER-200921185GPV

PATIENT
  Age: 10 Day
  Sex: Female
  Weight: 3.4 kg

DRUGS (1)
  1. MIRENA [Suspect]
     Indication: CONTRACEPTION
     Route: 064

REACTIONS (2)
  - HAEMANGIOMA CONGENITAL [None]
  - MATERNAL DRUGS AFFECTING FOETUS [None]
